FAERS Safety Report 9133366 (Version 1)
Quarter: 2013Q1

REPORT INFORMATION
  Report Type: Spontaneous
  Country: US (occurrence: US)
  Receive Date: 20130125
  Receipt Date: 20130125
  Transmission Date: 20140127
  Serious: Yes (Hospitalization)
  Sender: FDA-Public Use
  Company Number: US-B.I. PHARMACEUTICALS,INC./RIDGEFIELD-2013-BI-01339BP

PATIENT
  Age: 54 Year
  Sex: Female

DRUGS (2)
  1. COMBIVENT [Suspect]
     Indication: ASTHMA
     Route: 048
  2. MICARDIS HCTZ [Concomitant]

REACTIONS (1)
  - Inappropriate antidiuretic hormone secretion [Recovered/Resolved]
